FAERS Safety Report 4862115-3 (Version None)
Quarter: 2005Q4

REPORT INFORMATION
  Report Type: 
  Country: None (occurrence: None)
  Receive Date: 20051201
  Receipt Date: 20050813
  Transmission Date: 20060501
  Serious: No
  Sender: FDA-Public Use
  Company Number: 2005PV001193

PATIENT
  Age: 53 Year
  Sex: Female
  Weight: 79.3795 kg

DRUGS (9)
  1. BYETTA [Suspect]
     Indication: DIABETES MELLITUS NON-INSULIN-DEPENDENT
     Dosage: 5 MCG, BID, SC
     Route: 058
     Dates: start: 20050805
  2. METFORMIN [Concomitant]
  3. AVANDIA [Concomitant]
  4. ZOCOR [Concomitant]
  5. ZESTRIL [Concomitant]
  6. ZOLOFT [Concomitant]
  7. EFFEXOR XR [Concomitant]
  8. LUNESTA [Concomitant]
  9. ATARAX [Concomitant]

REACTIONS (6)
  - ABDOMINAL PAIN [None]
  - DECREASED APPETITE [None]
  - DIARRHOEA [None]
  - INSOMNIA [None]
  - WEIGHT [None]
  - WEIGHT DECREASED [None]
